FAERS Safety Report 12302942 (Version 2)
Quarter: 2016Q2

REPORT INFORMATION
  Report Type: Spontaneous
  Country: US (occurrence: US)
  Receive Date: 20160426
  Receipt Date: 20160511
  Transmission Date: 20160815
  Serious: No
  Sender: FDA-Public Use
  Company Number: US-009507513-1604USA001350

PATIENT
  Age: 32 Year
  Sex: Female

DRUGS (1)
  1. CELESTONE [Suspect]
     Active Substance: BETAMETHASONE
     Indication: TENDONITIS
     Dosage: 2 SHOTS ONE TIME, IN LEFT FOOT; FORMULATION: INJECTION
     Route: 030
     Dates: start: 20160323

REACTIONS (8)
  - Feeling hot [Recovering/Resolving]
  - Muscle spasms [Recovered/Resolved]
  - Insomnia [Recovering/Resolving]
  - Hyperhidrosis [Recovering/Resolving]
  - Nausea [Recovering/Resolving]
  - Decreased appetite [Unknown]
  - Pain in extremity [Recovered/Resolved]
  - Dizziness [Recovering/Resolving]

NARRATIVE: CASE EVENT DATE: 20160323
